FAERS Safety Report 15744868 (Version 1)
Quarter: 2018Q4

REPORT INFORMATION
  Report Type: Spontaneous
  Country: US (occurrence: US)
  Receive Date: 20181205
  Receipt Date: 20181205
  Transmission Date: 20190205
  Serious: No
  Sender: FDA-Public Use
  Company Number: None

PATIENT
  Age: 73 Year
  Sex: Female
  Weight: 73.94 kg

DRUGS (2)
  1. FORTEO [Suspect]
     Active Substance: TERIPARATIDE
     Indication: SENILE OSTEOPOROSIS
     Route: 058
     Dates: start: 201806
  2. FORTEO [Suspect]
     Active Substance: TERIPARATIDE
     Indication: ADVERSE EVENT

REACTIONS (5)
  - Rash [None]
  - Post procedural complication [None]
  - Back pain [None]
  - Red blood cell count increased [None]
  - Procedural pain [None]
